FAERS Safety Report 15340781 (Version 3)
Quarter: 2019Q4

REPORT INFORMATION
  Report Type: Spontaneous
  Country: US (occurrence: US)
  Receive Date: 20180831
  Receipt Date: 20191007
  Transmission Date: 20200122
  Serious: Yes (Other)
  Sender: FDA-Public Use
  Company Number: US-SA-2018SA138185

PATIENT
  Age: 64 Year
  Sex: Female

DRUGS (2)
  1. KEVZARA [Suspect]
     Active Substance: SARILUMAB
     Indication: RHEUMATOID ARTHRITIS
     Dosage: 150 MG,QOW
     Route: 058
     Dates: start: 20180413
  2. KEVZARA [Suspect]
     Active Substance: SARILUMAB
     Dosage: 150 MG,QOW
     Route: 058

REACTIONS (3)
  - Cellulitis [Not Recovered/Not Resolved]
  - Rheumatoid arthritis [Unknown]
  - Hepatic enzyme increased [Recovering/Resolving]

NARRATIVE: CASE EVENT DATE: 201804
